FAERS Safety Report 6985212-5 (Version None)
Quarter: 2010Q3

REPORT INFORMATION
  Report Type: 
  Country: None (occurrence: None)
  Receive Date: 20100913
  Receipt Date: 20100827
  Transmission Date: 20110219
  Serious: Yes (Hospitalization)
  Sender: FDA-Public Use
  Company Number: 010603

PATIENT
  Age: 83 Year
  Sex: Female

DRUGS (5)
  1. PLETAL [Suspect]
     Indication: CEREBRAL INFARCTION
     Dosage: 100 MG, BID,
     Dates: end: 20050422
  2. WARFARIN SODIUM [Suspect]
     Dosage: 1.5 MG, QD,
     Dates: end: 20050422
  3. OPALMON(LIMAPROST) TABLET [Suspect]
     Indication: CEREBRAL INFARCTION
     Dosage: 5 UG, TID,
     Dates: end: 20050422
  4. DIGOSIN (DIGOXIN), 0.1 % [Concomitant]
  5. TANATRIL (IMIDAPRIL HYDROCHLORIDE) TABLET [Concomitant]

REACTIONS (6)
  - BLEEDING TIME PROLONGED [None]
  - COMPLICATION OF DEVICE INSERTION [None]
  - FISTULA [None]
  - HAEMATEMESIS [None]
  - HAEMOGLOBIN DECREASED [None]
  - OPERATIVE HAEMORRHAGE [None]
